FAERS Safety Report 15853392 (Version 1)
Quarter: 2019Q1

REPORT INFORMATION
  Report Type: Spontaneous
  Country: US (occurrence: US)
  Receive Date: 20190122
  Receipt Date: 20190122
  Transmission Date: 20190417
  Serious: Yes (Hospitalization)
  Sender: FDA-Public Use
  Company Number: US-ASTRAZENECA-2019SE07931

PATIENT
  Age: 26027 Day
  Sex: Female
  Weight: 79.4 kg

DRUGS (7)
  1. INSULIN [Concomitant]
     Active Substance: INSULIN NOS
     Dosage: UNKNOWN
  2. MOVANTIK [Suspect]
     Active Substance: NALOXEGOL OXALATE
     Indication: CONSTIPATION
     Dosage: UNKNOWN
     Route: 048
     Dates: start: 20190109, end: 201901
  3. ASPIRIN. [Concomitant]
     Active Substance: ASPIRIN
  4. AMLODIPINE [Concomitant]
     Active Substance: AMLODIPINE BESYLATE
     Indication: BLOOD PRESSURE MEASUREMENT
     Dosage: UNKNOWN
  5. MIRALAX [Concomitant]
     Active Substance: POLYETHYLENE GLYCOL 3350
  6. VALSARTAN. [Concomitant]
     Active Substance: VALSARTAN
     Indication: BLOOD PRESSURE MEASUREMENT
     Dosage: UNKNOWN
  7. DILAUDID [Concomitant]
     Active Substance: HYDROMORPHONE HYDROCHLORIDE

REACTIONS (1)
  - Intestinal perforation [Not Recovered/Not Resolved]

NARRATIVE: CASE EVENT DATE: 20190113
